FAERS Safety Report 12093293 (Version 1)
Quarter: 2016Q1

REPORT INFORMATION
  Report Type: Spontaneous
  Country: US (occurrence: None)
  Receive Date: 20160218
  Receipt Date: 20160218
  Transmission Date: 20160526
  Serious: Yes (Life-Threatening)
  Sender: FDA-Public Use
  Company Number: None

PATIENT
  Age: 33 Year
  Sex: Male
  Weight: 81.65 kg

DRUGS (2)
  1. HUMIRA [Suspect]
     Active Substance: ADALIMUMAB
     Indication: CROHN^S DISEASE
     Dosage: ONE INJECTION
     Route: 058
     Dates: start: 20160216
  2. HUMIRA [Concomitant]
     Active Substance: ADALIMUMAB

REACTIONS (5)
  - Myocardial infarction [None]
  - Nausea [None]
  - Chest pain [None]
  - Trismus [None]
  - Anxiety [None]

NARRATIVE: CASE EVENT DATE: 20160216
